FAERS Safety Report 9122756 (Version 3)
Quarter: 2013Q2

REPORT INFORMATION
  Report Type: Spontaneous
  Country: US (occurrence: US)
  Receive Date: 20130115
  Receipt Date: 20130415
  Transmission Date: 20140414
  Serious: No
  Sender: FDA-Public Use
  Company Number: US-PFIZER INC-2013011239

PATIENT
  Sex: Female

DRUGS (1)
  1. PREMARIN [Suspect]
     Dosage: 0.625 UNK, 2X/DAY

REACTIONS (3)
  - Hot flush [Unknown]
  - Depressed mood [Unknown]
  - Mood altered [Unknown]
